FAERS Safety Report 9312007 (Version 1)
Quarter: 2013Q1

REPORT INFORMATION
  Report Type: Spontaneous
  Country: US (occurrence: None)
  Receive Date: 20121220
  Receipt Date: 20121220
  Transmission Date: 20140127
  Serious: Yes (Hospitalization)
  Sender: FDA-Public Use
  Company Number: 142421-1

PATIENT
  Age: 75 Year
  Sex: Male
  Weight: 54 kg

DRUGS (1)
  1. LEUCOVORIN CALCIUM FOR INJ. 50MG - BEDFORD LABS, INC. [Suspect]
     Indication: COLORECTAL CANCER METASTATIC
     Route: 042
     Dates: start: 20121016, end: 20121016

REACTIONS (8)
  - Constipation [None]
  - Diarrhoea [None]
  - Dehydration [None]
  - Muscle atrophy [None]
  - White blood cell count decreased [None]
  - Skin ulcer [None]
  - Malnutrition [None]
  - Hypophagia [None]
